FAERS Safety Report 4597908-3 (Version None)
Quarter: 2005Q1

REPORT INFORMATION
  Report Type: 
  Country: None (occurrence: None)
  Receive Date: 20050301
  Receipt Date: 20050214
  Transmission Date: 20050727
  Serious: Yes (Death)
  Sender: FDA-Public Use
  Company Number: S05-USA-00886-01

PATIENT
  Age: 28 Year
  Sex: Male
  Weight: 77.5651 kg

DRUGS (12)
  1. CELEXA [Suspect]
     Dosage: 40 MG QD PO
     Route: 048
  2. CELEXA [Concomitant]
     Dates: end: 20040804
  3. DEPAKOTE [Concomitant]
  4. LIPITOR [Concomitant]
  5. ATIVAN [Concomitant]
  6. COMBIVIR [Concomitant]
  7. VIRACEPT [Concomitant]
  8. ZYPREXA [Concomitant]
  9. NIZORAL [Concomitant]
  10. BENADRYL [Concomitant]
  11. TYLENOL [Concomitant]
  12. MULTI-VITAMIN [Concomitant]

REACTIONS (27)
  - ACCIDENTAL OVERDOSE [None]
  - ATHEROSCLEROSIS [None]
  - BLOOD ALCOHOL INCREASED [None]
  - BLOOD THROMBIN [None]
  - BODY FAT DISORDER [None]
  - BODY TEMPERATURE DECREASED [None]
  - BRAIN OEDEMA [None]
  - COMA [None]
  - CORONARY ARTERY ATHEROSCLEROSIS [None]
  - CYANOSIS [None]
  - DRUG TOXICITY [None]
  - EYE OEDEMA [None]
  - FOAMING AT MOUTH [None]
  - GASTRIC DISORDER [None]
  - HEPATIC CONGESTION [None]
  - LARYNGEAL OEDEMA [None]
  - LOSS OF CONSCIOUSNESS [None]
  - LYMPHADENOPATHY [None]
  - MUSCLE RIGIDITY [None]
  - PERICARDIAL EFFUSION [None]
  - PLEURAL EFFUSION [None]
  - PNEUMONIA [None]
  - RENAL DISORDER [None]
  - SKIN DISCOLOURATION [None]
  - SPLENOMEGALY [None]
  - UPPER RESPIRATORY TRACT INFECTION [None]
  - VENTRICULAR HYPERTROPHY [None]
